FAERS Safety Report 8164311-9 (Version None)
Quarter: 2012Q1

REPORT INFORMATION
  Report Type: 
  Country: None (occurrence: None)
  Receive Date: 20120224
  Receipt Date: 20111227
  Transmission Date: 20120608
  Serious: No
  Sender: FDA-Public Use
  Company Number: US-MYLANLABS-2011S1026458

PATIENT
  Sex: Male

DRUGS (1)
  1. ATENOLOL [Suspect]
     Dates: start: 20111201, end: 20111227

REACTIONS (1)
  - PARAESTHESIA [None]
